FAERS Safety Report 8687434 (Version 2)
Quarter: 2013Q4

REPORT INFORMATION
  Report Type: Spontaneous
  Country: US (occurrence: US)
  Receive Date: 20120727
  Receipt Date: 20131101
  Transmission Date: 20140711
  Serious: No
  Sender: FDA-Public Use
  Company Number: US-009507513-1207USA007931

PATIENT
  Age: 5 Year
  Sex: Male
  Weight: 15.87 kg

DRUGS (3)
  1. CLARITIN REDITABS [Suspect]
     Indication: HYPERSENSITIVITY
     Dosage: 10 MG, QD
     Route: 048
  2. CLARITIN REDITABS [Suspect]
     Dosage: 10 MG, ONCE
     Route: 048
     Dates: start: 20120708
  3. CLARITIN REDITABS [Suspect]
     Dosage: 10 MG, ONCE
     Route: 048
     Dates: start: 20120708

REACTIONS (2)
  - Overdose [Recovering/Resolving]
  - Drug administered to patient of inappropriate age [Unknown]
